FAERS Safety Report 6010029-8 (Version None)
Quarter: 2008Q4

REPORT INFORMATION
  Report Type: 
  Country: None (occurrence: None)
  Receive Date: 20081218
  Receipt Date: 20081204
  Transmission Date: 20090506
  Serious: Yes (Life-Threatening, Hospitalization)
  Sender: FDA-Public Use
  Company Number: US-PFIZER INC-2005121953

PATIENT
  Sex: Male
  Weight: 85.714 kg

DRUGS (6)
  1. INHALED HUMAN INSULIN [Suspect]
     Indication: TYPE 2 DIABETES MELLITUS
     Dosage: UNIT DOSE: 1 MG BID, 3MG BID; INTERVAL: BEFORE MEALS
     Route: 055
     Dates: start: 20030529, end: 20050517
  2. *INSULIN GLARGINE [Suspect]
     Indication: TYPE 2 DIABETES MELLITUS
     Dosage: 74 IU, 1X/DAY
     Route: 058
     Dates: start: 20030529, end: 20050517
  3. PROTONIX [Concomitant]
     Route: 048
     Dates: start: 20030324
  4. ZOCOR [Concomitant]
     Route: 048
     Dates: start: 20040212
  5. SYNTHROID [Concomitant]
     Route: 048
     Dates: start: 20050416
  6. BENECOL [Concomitant]
     Route: 048
     Dates: start: 20050331

REACTIONS (2)
  - CELLULITIS [None]
  - GANGRENE [None]
